FAERS Safety Report 23763545 (Version 1)
Quarter: 2024Q2

REPORT INFORMATION
  Report Type: Spontaneous
  Country: CH (occurrence: CH)
  Receive Date: 20240419
  Receipt Date: 20240419
  Transmission Date: 20240716
  Serious: Yes (Hospitalization, Other)
  Sender: FDA-Public Use
  Company Number: None

PATIENT
  Age: 58 Year
  Sex: Female
  Weight: 47 kg

DRUGS (3)
  1. ACLASTA [Suspect]
     Active Substance: ZOLEDRONIC ACID
     Indication: Osteoporosis
     Dosage: CYCLICAL
     Route: 041
     Dates: start: 20240206, end: 20240206
  2. ESCITALOPRAM [Concomitant]
     Active Substance: ESCITALOPRAM OXALATE
     Indication: Depression
     Dosage: 10 MG N/A DOSE EVERY 1 DAY
     Route: 048
  3. CALCIUM CARBONATE\CHOLECALCIFEROL [Concomitant]
     Active Substance: CALCIUM CARBONATE\CHOLECALCIFEROL
     Indication: Osteoporosis prophylaxis
     Dosage: 1 LF N/A DOSE EVERY 1 DAY
     Route: 048

REACTIONS (9)
  - Polymyalgia rheumatica [Recovering/Resolving]
  - Red blood cell sedimentation rate increased [Recovering/Resolving]
  - Muscle rigidity [Recovering/Resolving]
  - Pyrexia [Recovered/Resolved]
  - Headache [Recovered/Resolved]
  - Night sweats [Recovered/Resolved]
  - Arthralgia [Recovering/Resolving]
  - C-reactive protein increased [Recovering/Resolving]
  - Nasopharyngitis [Recovered/Resolved]

NARRATIVE: CASE EVENT DATE: 20240201
